FAERS Safety Report 17405196 (Version 1)
Quarter: 2020Q1

REPORT INFORMATION
  Report Type: Report from Study
  Country: US (occurrence: US)
  Receive Date: 20200212
  Receipt Date: 20200212
  Transmission Date: 20200409
  Serious: Yes (Death)
  Sender: FDA-Public Use
  Company Number: US-TAIHO ONCOLOGY  INC-EU-2020-00347

PATIENT
  Age: 68 Year
  Sex: Female
  Weight: 53.44 kg

DRUGS (2)
  1. HYDROMORPHONE [Concomitant]
     Active Substance: HYDROMORPHONE
     Route: 065
  2. LONSURF [Suspect]
     Active Substance: TIPIRACIL HYDROCHLORIDE\TRIFLURIDINE
     Indication: RECTAL CANCER
     Dosage: CYCLE NUMBER UNKNOWN
     Route: 048
     Dates: start: 20191227, end: 20200203

REACTIONS (1)
  - Death [Fatal]

NARRATIVE: CASE EVENT DATE: 20200203
